FAERS Safety Report 5143247-1 (Version None)
Quarter: 2006Q4

REPORT INFORMATION
  Report Type: 
  Country: None (occurrence: None)
  Receive Date: 20061031
  Receipt Date: 20061031
  Transmission Date: 20070319
  Serious: Yes (Death)
  Sender: FDA-Public Use
  Company Number: None

PATIENT
  Age: 69 Year
  Sex: Female
  Weight: 48.9885 kg

DRUGS (2)
  1. ALLOPURINOL [Suspect]
  2. BIAXIN [Suspect]

REACTIONS (4)
  - DEHYDRATION [None]
  - EXCORIATION [None]
  - MULTI-ORGAN FAILURE [None]
  - STEVENS-JOHNSON SYNDROME [None]
